FAERS Safety Report 18682172 (Version 1)
Quarter: 2020Q4

REPORT INFORMATION
  Report Type: Spontaneous
  Country: US (occurrence: US)
  Receive Date: 20201229
  Receipt Date: 20201229
  Transmission Date: 20210114
  Serious: Yes (Hospitalization)
  Sender: FDA-Public Use
  Company Number: None

PATIENT
  Age: 66 Year
  Sex: Male

DRUGS (1)
  1. ETOPOSIDE. [Suspect]
     Active Substance: ETOPOSIDE
     Indication: BRAIN NEOPLASM MALIGNANT
     Route: 048
     Dates: start: 20201205

REACTIONS (3)
  - White blood cell count decreased [None]
  - Platelet count decreased [None]
  - Cellulitis [None]

NARRATIVE: CASE EVENT DATE: 20201218
